FAERS Safety Report 10252910 (Version 1)
Quarter: 2014Q2

REPORT INFORMATION
  Report Type: Spontaneous
  Country: GB (occurrence: GB)
  Receive Date: 20140623
  Receipt Date: 20140623
  Transmission Date: 20141212
  Serious: Yes (Other)
  Sender: FDA-Public Use
  Company Number: GB-TEVA-488637ISR

PATIENT
  Age: 60 Year
  Sex: Male
  Weight: 75 kg

DRUGS (5)
  1. INDAPAMIDE [Suspect]
     Route: 048
     Dates: start: 20140224
  2. CETIRIZINE [Concomitant]
     Dates: start: 20140306
  3. OLIVE OIL [Concomitant]
     Dates: start: 20140502, end: 20140503
  4. RAMIPRIL [Concomitant]
     Dates: start: 20140224
  5. SIMVASTATIN [Concomitant]
     Dates: start: 20140225

REACTIONS (1)
  - Hypokalaemia [Unknown]
